FAERS Safety Report 24138319 (Version 1)
Quarter: 2024Q3

REPORT INFORMATION
  Report Type: Spontaneous
  Country: GB (occurrence: GB)
  Receive Date: 20240725
  Receipt Date: 20240725
  Transmission Date: 20241017
  Serious: Yes (Other)
  Sender: ABBVIE
  Company Number: None

PATIENT

DRUGS (17)
  1. ESCITALOPRAM [Suspect]
     Active Substance: ESCITALOPRAM OXALATE
     Indication: Product used for unknown indication
     Route: 048
     Dates: start: 20240601, end: 20240701
  2. ESCITALOPRAM [Suspect]
     Active Substance: ESCITALOPRAM OXALATE
     Indication: Product used for unknown indication
     Dosage: 1 TO BE TAKEN EACH MORNING - REVIEW AFTER 3 WEEKS
     Route: 048
     Dates: start: 20240619, end: 20240717
  3. BECLOMETHASONE DIPROPIONATE [Concomitant]
     Active Substance: BECLOMETHASONE DIPROPIONATE
     Indication: Product used for unknown indication
     Dosage: TWO PUFFS TO BE INHALED TWICE A DAY REGULARLY
     Dates: start: 20230919
  4. DESLORATADINE [Concomitant]
     Active Substance: DESLORATADINE
     Indication: Product used for unknown indication
     Dosage: TAKE ONE DAILY FOR SUMMER MONTHS.
     Dates: start: 20230919
  5. FUROSEMIDE [Concomitant]
     Active Substance: FUROSEMIDE
     Indication: Oedema peripheral
     Dosage: TAKE ONE IN THE MORNING FOR MANAGING LEG OEDEMA.
     Dates: start: 20230919
  6. ISPAGHULA EXTRACT\PSYLLIUM [Concomitant]
     Active Substance: HERBALS\PLANTAGO OVATA SEED\PLANTAGO SEED
     Indication: Product used for unknown indication
     Dosage: TAKE ONE SACHET IN WATER TWICE A DAY AFTER FOOD
     Dates: start: 20230919
  7. ALBUTEROL [Concomitant]
     Active Substance: ALBUTEROL
     Indication: Product used for unknown indication
     Dosage: ONE OR TWO PUFFS TO BE INHALED FOUR TIMES A DAY...
     Dates: start: 20230919
  8. NITROFURANTOIN [Concomitant]
     Active Substance: NITROFURANTOIN
     Indication: Product used for unknown indication
     Dosage: TAKE ONE CAPSULE TWICE DAILY FOR 7 DAYS, TO TREAT INFECTION
     Dates: start: 20240705, end: 20240712
  9. BISOPROLOL [Concomitant]
     Active Substance: BISOPROLOL\BISOPROLOL FUMARATE
     Indication: Product used for unknown indication
     Dosage: ONE TO BE TAKEN DAILY
     Dates: start: 20230919
  10. ACETAMINOPHEN [Concomitant]
     Active Substance: ACETAMINOPHEN
     Indication: Product used for unknown indication
     Dosage: TWO TABLETS TO BE TAKEN UPTO FOUR TIMES DAILY
     Dates: start: 20240322
  11. ROSUVASTATIN [Concomitant]
     Active Substance: ROSUVASTATIN
     Indication: Dyslipidaemia
     Dosage: ONE TO BE TAKEN EACH DAY FOR LOWERING CHOLESTER...
     Dates: start: 20230919
  12. OMEPRAZOLE [Concomitant]
     Active Substance: OMEPRAZOLE
     Indication: Product used for unknown indication
     Dosage: ONE TO BE TAKEN ONCE DAILY
     Dates: start: 20240322
  13. CANDESARTAN [Concomitant]
     Active Substance: CANDESARTAN
     Indication: Product used for unknown indication
     Dosage: TWO TO BE TAKEN EACH DAY
     Dates: start: 20230919
  14. MAXIDEX [Concomitant]
     Active Substance: DEXAMETHASONE
     Indication: Product used for unknown indication
     Dosage: AS DIRECTED
     Dates: start: 20230919
  15. ALLOPURINOL [Concomitant]
     Active Substance: ALLOPURINOL
     Indication: Product used for unknown indication
     Dosage: ONE TO BE TAKEN EACH DAY
     Dates: start: 20230919
  16. SILDENAFIL [Concomitant]
     Active Substance: SILDENAFIL
     Indication: Product used for unknown indication
     Dosage: TAKE ONE TABLET 30 MINUTES BEFORE PLANNED ACTIVITY
     Route: 065
     Dates: start: 20240719
  17. NEOCLARITYN [Concomitant]
     Active Substance: DESLORATADINE
     Indication: Product used for unknown indication
     Dosage: TAKE ONE DAILY FOR SUMMER MONTHS.
     Route: 065
     Dates: start: 20240530, end: 20240629

REACTIONS (1)
  - Dizziness [Recovered/Resolved]

NARRATIVE: CASE EVENT DATE: 20240601
